APPROVED DRUG PRODUCT: TRIKAFTA (COPACKAGED)
Active Ingredient: ELEXACAFTOR, IVACAFTOR, TEZACAFTOR; IVACAFTOR
Strength: 100MG,75MG,50MG; 150MG
Dosage Form/Route: TABLET;ORAL
Application: N212273 | Product #001
Applicant: VERTEX PHARMACEUTICALS INC
Approved: Oct 21, 2019 | RLD: Yes | RS: Yes | Type: RX

PATENTS:
Patent 9012496 | Expires: Jul 15, 2033
Patent 10022352 | Expires: Apr 9, 2027
Patent 10081621 | Expires: Mar 25, 2031
Patent 9931334 | Expires: Dec 28, 2026
Patent 9670163 | Expires: Dec 28, 2026
Patent 8415387 | Expires: Nov 12, 2027
Patent 8324242 | Expires: Aug 5, 2027
Patent 12458635 | Expires: Aug 13, 2029
Patent 11639347 | Expires: Apr 9, 2027
Patent 11578062 | Expires: Mar 25, 2031
Patent 8324242 | Expires: Aug 5, 2027
Patent 8415387 | Expires: Nov 12, 2027
Patent 8598181 | Expires: May 1, 2027
Patent 8354427 | Expires: Jul 6, 2026
Patent 9670163 | Expires: Dec 28, 2026
Patent 9931334 | Expires: Dec 28, 2026
Patent 9974781 | Expires: Apr 9, 2027
Patent 10081621 | Expires: Mar 25, 2031
Patent 8324242 | Expires: Aug 5, 2027
Patent 8354427 | Expires: Jul 6, 2026
Patent 8415387 | Expires: Nov 12, 2027
Patent 8598181 | Expires: May 1, 2027
Patent 9012496 | Expires: Jul 15, 2033
Patent 9670163 | Expires: Dec 28, 2026
Patent 9931334 | Expires: Dec 28, 2026
Patent 9974781 | Expires: Apr 9, 2027
Patent 10022352 | Expires: Apr 9, 2027
Patent 10081621 | Expires: Mar 25, 2031
Patent 10239867 | Expires: Apr 9, 2027
Patent 10758534 | Expires: Oct 6, 2035
Patent 11179367 | Expires: Dec 8, 2037
Patent 11564916 | Expires: Aug 13, 2029
Patent 12350262 | Expires: Jul 17, 2038
Patent 10758534 | Expires: Oct 6, 2035
Patent 9974781 | Expires: Apr 9, 2027
Patent 8598181 | Expires: May 1, 2027
Patent 10239867 | Expires: Apr 9, 2027
Patent 10793547 | Expires: Dec 8, 2037
Patent 11517564 | Expires: Dec 8, 2037
Patent 10239867 | Expires: Apr 9, 2027
Patent 10758534 | Expires: Oct 6, 2035
Patent 10793547 | Expires: Dec 8, 2037
Patent 11426407 | Expires: Oct 6, 2035
Patent 11639347 | Expires: Apr 9, 2027
Patent 11578062 | Expires: Mar 25, 2031
Patent 11564916 | Expires: Aug 13, 2029
Patent 11517564 | Expires: Dec 8, 2037
Patent 11426407 | Expires: Oct 6, 2035
Patent 11179367 | Expires: Dec 8, 2037
Patent 10793547 | Expires: Dec 8, 2037
Patent 10646481 | Expires: Aug 13, 2029
Patent 7645789 | Expires: May 1, 2027
Patent 7776905 | Expires: Jun 3, 2027
Patent 7495103 | Expires: May 20, 2027
Patent 8410274 | Expires: Dec 28, 2026
Patent 8754224 | Expires: Dec 28, 2026
Patent RE50453 | Expires: Jul 10, 2031
Patent 8623905 | Expires: May 1, 2027
Patent 11453655 | Expires: Dec 8, 2037

EXCLUSIVITY:
Code: M-313 | Date: Dec 20, 2027
Code: ODE-275 | Date: Oct 21, 2026
Code: ODE-323 | Date: Dec 21, 2027
Code: ODE-357 | Date: Jun 8, 2028
Code: ODE-512 | Date: Dec 20, 2031